FAERS Safety Report 9875668 (Version 2)
Quarter: 2014Q1

REPORT INFORMATION
  Report Type: Other
  Country: US (occurrence: US)
  Receive Date: 20140206
  Receipt Date: 20140206
  Transmission Date: 20141002
  Serious: No
  Sender: FDA-Public Use
  Company Number: US-ACORDA-ACO_35865_2013

PATIENT
  Age: 47 Year
  Sex: Female
  Weight: 90.7 kg

DRUGS (5)
  1. AMPYRA [Suspect]
     Indication: MULTIPLE SCLEROSIS
     Dosage: 10 MG, Q 12 HRS
     Route: 048
     Dates: start: 201107, end: 201204
  2. AMPYRA [Suspect]
     Indication: GAIT DISTURBANCE
     Dosage: 10 MG, QD
     Route: 048
     Dates: start: 201204, end: 201204
  3. AMPYRA [Suspect]
     Dosage: 10 MG, BID
     Dates: start: 201204
  4. CYMBALTA [Suspect]
     Indication: DEPRESSION
     Dosage: 60 MG, QD
     Route: 048
     Dates: start: 2010, end: 201206
  5. OXYBUTYNIN [Suspect]
     Indication: HYPERTONIC BLADDER
     Dosage: 10 MG, BID
     Route: 048
     Dates: start: 201111, end: 201204

REACTIONS (2)
  - Muscle spasticity [Recovering/Resolving]
  - Muscular weakness [Unknown]
